FAERS Safety Report 11504338 (Version 2)
Quarter: 2015Q3

REPORT INFORMATION
  Report Type: Spontaneous
  Country: US (occurrence: US)
  Receive Date: 20150915
  Receipt Date: 20150922
  Transmission Date: 20151125
  Serious: No
  Sender: FDA-Public Use
  Company Number: US-LEO PHARMA-236897

PATIENT
  Age: 55 Year
  Sex: Female

DRUGS (1)
  1. PICATO [Suspect]
     Active Substance: INGENOL MEBUTATE
     Indication: PRECANCEROUS SKIN LESION
     Dates: start: 20150903

REACTIONS (4)
  - Drug administered at inappropriate site [Unknown]
  - Application site discharge [Not Recovered/Not Resolved]
  - Application site vesicles [Not Recovered/Not Resolved]
  - Application site pain [Not Recovered/Not Resolved]
